FAERS Safety Report 14897470 (Version 1)
Quarter: 2018Q2

REPORT INFORMATION
  Report Type: Spontaneous
  Country: US (occurrence: US)
  Receive Date: 20180427
  Receipt Date: 20180427
  Transmission Date: 20180711
  Serious: No
  Sender: FDA-Public Use
  Company Number: None

PATIENT
  Age: 18 Year
  Sex: Female

DRUGS (1)
  1. EPOGEN [Suspect]
     Active Substance: ERYTHROPOIETIN
     Dosage: 20,000 UNITS PER:0.2ML (4,000 U;(4,000  SQ?
     Route: 058

REACTIONS (3)
  - Device difficult to use [None]
  - Incorrect dose administered by device [None]
  - Injection site pain [None]

NARRATIVE: CASE EVENT DATE: 20180427
